FAERS Safety Report 6349650-6 (Version None)
Quarter: 2009Q3

REPORT INFORMATION
  Report Type: 
  Country: None (occurrence: None)
  Receive Date: 20090911
  Receipt Date: 20090902
  Transmission Date: 20100115
  Serious: Yes (Other)
  Sender: FDA-Public Use
  Company Number: US-BAYER-200838822NA

PATIENT
  Age: 33 Year
  Sex: Female

DRUGS (5)
  1. MAGNEVIST [Suspect]
     Indication: ANGIOGRAM
  2. OMNISCAN [Suspect]
     Indication: ANGIOGRAM
  3. OPTIMARK [Suspect]
     Indication: ANGIOGRAM
  4. PROHANCE [Suspect]
     Indication: ANGIOGRAM
  5. MULTIHANCE [Suspect]
     Indication: ANGIOGRAM

REACTIONS (9)
  - ANXIETY [None]
  - EMOTIONAL DISTRESS [None]
  - FIBROSIS [None]
  - GENERAL PHYSICAL HEALTH DETERIORATION [None]
  - JOINT SWELLING [None]
  - NEPHROGENIC SYSTEMIC FIBROSIS [None]
  - OEDEMA PERIPHERAL [None]
  - PAIN [None]
  - QUALITY OF LIFE DECREASED [None]
